FAERS Safety Report 6820955-5 (Version None)
Quarter: 2010Q3

REPORT INFORMATION
  Report Type: 
  Country: None (occurrence: None)
  Receive Date: 20100707
  Receipt Date: 20071119
  Transmission Date: 20110219
  Serious: No
  Sender: FDA-Public Use
  Company Number: US-PFIZER INC-2007071097

PATIENT
  Sex: Female

DRUGS (3)
  1. SERTRALINE [Suspect]
     Indication: POSTPARTUM DEPRESSION
     Dates: start: 20060101
  2. VITAMINS [Concomitant]
  3. ZOLOFT [Concomitant]
     Indication: POSTPARTUM DEPRESSION
     Dates: start: 20061201

REACTIONS (11)
  - AFFECT LABILITY [None]
  - ANXIETY [None]
  - BACK PAIN [None]
  - FATIGUE [None]
  - GASTROOESOPHAGEAL REFLUX DISEASE [None]
  - GESTATIONAL OEDEMA [None]
  - HEADACHE [None]
  - IRRITABILITY [None]
  - NAUSEA [None]
  - NECK PAIN [None]
  - PYREXIA [None]
